FAERS Safety Report 8093785-7 (Version None)
Quarter: 2012Q1

REPORT INFORMATION
  Report Type: 
  Country: None (occurrence: None)
  Receive Date: 20120129
  Receipt Date: 20111017
  Transmission Date: 20120608
  Serious: No
  Sender: FDA-Public Use
  Company Number: US-ABBOTT-11P-163-0866050-00

PATIENT
  Sex: Female

DRUGS (4)
  1. ZOLOFT [Suspect]
     Indication: ILL-DEFINED DISORDER
  2. PENTASA [Concomitant]
     Indication: CROHN'S DISEASE
  3. HUMIRA [Suspect]
     Indication: CROHN'S DISEASE
  4. MULTI-VITAMINS [Concomitant]
     Indication: PRODUCT USED FOR UNKNOWN INDICATION

REACTIONS (2)
  - HYPERHIDROSIS [None]
  - FURUNCLE [None]
